FAERS Safety Report 7660473-8 (Version None)
Quarter: 2011Q3

REPORT INFORMATION
  Report Type: 
  Country: None (occurrence: None)
  Receive Date: 20110805
  Receipt Date: 20110722
  Transmission Date: 20111222
  Serious: Yes (Hospitalization, Other)
  Sender: FDA-Public Use
  Company Number: GB-WATSON-2011-11659

PATIENT
  Age: 74 Year
  Sex: Male

DRUGS (14)
  1. ATENOLOL [Suspect]
     Indication: HYPERTENSION
     Dosage: 25 MG, DAILY
     Route: 048
     Dates: start: 20110401, end: 20110412
  2. ATENOLOL [Suspect]
     Dosage: 50 MG, DAILY
     Route: 048
     Dates: end: 20110401
  3. AZD5363 [Suspect]
     Indication: COLORECTAL CANCER
     Dosage: 160 MG, BID
     Route: 048
     Dates: start: 20110301, end: 20110323
  4. ATENOLOL [Suspect]
     Dosage: UNK
     Route: 048
     Dates: start: 20110420
  5. SPIRONOLACTONE [Suspect]
     Indication: HYPERTENSION
     Dosage: 100 MG, DAILY
     Route: 048
     Dates: start: 20110222
  6. AZD5363 [Suspect]
     Dosage: 160 MG, DAILY
     Route: 048
     Dates: start: 20110420, end: 20110420
  7. ROSUVASTATIN [Concomitant]
     Indication: HYPERCHOLESTEROLAEMIA
     Dosage: 10 MG, DAILY
     Route: 048
     Dates: start: 20110214
  8. AZD5363 [Suspect]
     Dosage: 160 MG, DAILY
     Route: 048
     Dates: start: 20110524, end: 20110525
  9. AZD5363 [Suspect]
     Dosage: 160 MG, BID
     Route: 048
     Dates: start: 20110421, end: 20110523
  10. AZD5363 [Suspect]
     Dosage: 160 MG, DAILY
     Route: 048
     Dates: start: 20110222
  11. AZD5363 [Suspect]
     Dosage: 160 MG, DAILY
     Route: 048
     Dates: start: 20110324, end: 20110324
  12. BENDROFLUMETHIAZIDE [Concomitant]
     Indication: HYPERTENSION
     Dosage: 2.5 MG, DAILY
     Route: 048
     Dates: end: 20110221
  13. AZD5363 [Suspect]
     Dosage: 160 MG, BID
     Route: 048
     Dates: start: 20110325
  14. SIMVASTATIN [Concomitant]
     Indication: HYPERCHOLESTEROLAEMIA
     Dosage: 40 MG, DAILY
     Route: 048
     Dates: end: 20110214

REACTIONS (4)
  - TROPONIN INCREASED [None]
  - SINUS BRADYCARDIA [None]
  - SINUS ARRHYTHMIA [None]
  - HYPOKALAEMIA [None]
